FAERS Safety Report 5518140-2 (Version None)
Quarter: 2007Q4

REPORT INFORMATION
  Report Type: 
  Country: None (occurrence: None)
  Receive Date: 20071113
  Receipt Date: 20071113
  Transmission Date: 20080405
  Serious: Yes (Other)
  Sender: FDA-Public Use
  Company Number: None

PATIENT
  Sex: Male
  Weight: 97.0698 kg

DRUGS (2)
  1. OXYCODONE CR [Suspect]
     Indication: ABDOMINAL PAIN
     Dosage: 40MG ONE P.O. TID
     Route: 048
  2. OXYCODONE CR [Suspect]
     Indication: FLANK PAIN
     Dosage: 40MG ONE P.O. TID
     Route: 048

REACTIONS (5)
  - FATIGUE [None]
  - NAUSEA [None]
  - PAIN [None]
  - PHARMACEUTICAL PRODUCT COMPLAINT [None]
  - THERAPEUTIC RESPONSE UNEXPECTED WITH DRUG SUBSTITUTION [None]
